FAERS Safety Report 17414679 (Version 3)
Quarter: 2020Q1

REPORT INFORMATION
  Report Type: Spontaneous
  Country: FR (occurrence: FR)
  Receive Date: 20200213
  Receipt Date: 20200323
  Transmission Date: 20200409
  Serious: No
  Sender: FDA-Public Use
  Company Number: FR-SEPTODONT-202005708

PATIENT
  Age: 43 Year
  Sex: Female

DRUGS (1)
  1. SCANDONEST PLAIN [Suspect]
     Active Substance: MEPIVACAINE HYDROCHLORIDE
     Indication: DENTAL LOCAL ANAESTHESIA
     Dosage: DENTAL INTRALIGAMENTARY INJECTION ??HEATHLY INJECTION SITE
     Route: 004
     Dates: start: 20200109, end: 20200109

REACTIONS (4)
  - Aphthous ulcer [Not Recovered/Not Resolved]
  - Pain in jaw [Recovered/Resolved]
  - Osteonecrosis [Unknown]
  - Alveolitis [Unknown]

NARRATIVE: CASE EVENT DATE: 20200109
